FAERS Safety Report 5089192-1 (Version None)
Quarter: 2006Q3

REPORT INFORMATION
  Report Type: 
  Country: None (occurrence: None)
  Receive Date: 20060822
  Receipt Date: 20060802
  Transmission Date: 20061208
  Serious: Yes (Death)
  Sender: FDA-Public Use
  Company Number: 228668

PATIENT
  Age: 74 Year
  Sex: Female

DRUGS (4)
  1. AVASTIN [Suspect]
     Indication: COLON CANCER
     Dosage: 6 MG/KG, Q2W, INTRAVENOUS
     Route: 042
     Dates: start: 20060517
  2. ELOXATIN [Suspect]
     Indication: COLON CANCER
     Dosage: 85 MG/M2, Q2W, INTRAVENOUS
     Route: 042
     Dates: start: 20060517
  3. LEUCOVORIN CALCIUM [Suspect]
     Indication: COLON CANCER
     Dosage: 400 MG/M2, Q2W, INTRAVENOUS
     Route: 042
     Dates: start: 20060517
  4. FLUOROURACIL [Suspect]
     Indication: COLON CANCER
     Dosage: SEE IMAGE, INTRAVENOUS BOLUS
     Route: 040
     Dates: start: 20060517

REACTIONS (3)
  - DEPRESSED LEVEL OF CONSCIOUSNESS [None]
  - DYSPNOEA [None]
  - SUDDEN DEATH [None]
